FAERS Safety Report 7995933-3 (Version None)
Quarter: 2011Q4

REPORT INFORMATION
  Report Type: 
  Country: None (occurrence: None)
  Receive Date: 20111220
  Receipt Date: 20111215
  Transmission Date: 20120403
  Serious: Yes (Hospitalization)
  Sender: FDA-Public Use
  Company Number: JP-CEPHALON-2011006289

PATIENT
  Age: 36 Year
  Sex: Female
  Weight: 51 kg

DRUGS (4)
  1. GRANISETRON HCL [Concomitant]
  2. BENDAMUSTINE HCL [Suspect]
     Indication: B-CELL LYMPHOMA
     Route: 042
     Dates: start: 20110914
  3. APREPITANT [Concomitant]
  4. URSODIOL [Concomitant]

REACTIONS (1)
  - DEEP VEIN THROMBOSIS [None]
